FAERS Safety Report 9121536 (Version 5)
Quarter: 2013Q4

REPORT INFORMATION
  Report Type: Spontaneous
  Country: US (occurrence: US)
  Receive Date: 20130227
  Receipt Date: 20131029
  Transmission Date: 20140711
  Serious: No
  Sender: FDA-Public Use
  Company Number: US-009507513-1302USA009571

PATIENT
  Age: 32 Year
  Sex: Female

DRUGS (2)
  1. IMPLANON [Suspect]
     Indication: CONTRACEPTION
     Dosage: UNK
     Route: 059
     Dates: start: 201102
  2. IMPLANON [Suspect]
     Dosage: UNK
     Route: 059
     Dates: start: 20110401

REACTIONS (4)
  - Unintended pregnancy [Recovered/Resolved]
  - Medical device complication [Unknown]
  - Device expulsion [Unknown]
  - Drug dose omission [Unknown]
